FAERS Safety Report 4289764-8 (Version None)
Quarter: 2004Q1

REPORT INFORMATION
  Report Type: 
  Country: None (occurrence: None)
  Receive Date: 20040206
  Receipt Date: 20040127
  Transmission Date: 20041129
  Serious: Yes (Other)
  Sender: FDA-Public Use
  Company Number: UK064737

PATIENT
  Age: 80 Year
  Sex: Female

DRUGS (6)
  1. NEULASTA [Suspect]
     Indication: CHEMOTHERAPY
     Dates: start: 20040110, end: 20040110
  2. RITUXIMAB [Suspect]
     Dates: start: 20031201
  3. CYCLOPHOSPHAMIDE [Concomitant]
  4. DOXORUBICIN HCL [Concomitant]
  5. PREDNISONE [Concomitant]
  6. VINCRISTINE SULFATE [Concomitant]

REACTIONS (3)
  - NEUTROPENIA [None]
  - PAIN [None]
  - THROMBOCYTOPENIA [None]
